FAERS Safety Report 18218502 (Version 1)
Quarter: 2020Q3

REPORT INFORMATION
  Report Type: Spontaneous
  Country: US (occurrence: US)
  Receive Date: 20200831
  Receipt Date: 20200831
  Transmission Date: 20201103
  Serious: Yes (Hospitalization)
  Sender: FDA-Public Use
  Company Number: None

PATIENT
  Age: 77 Year
  Sex: Male
  Weight: 91 kg

DRUGS (1)
  1. DULAGLUTIDE (DULAGLUTIDE 1.5MG/0.5ML INJ, SOLN, PEN [Suspect]
     Active Substance: DULAGLUTIDE
     Route: 058
     Dates: start: 20190722, end: 20191112

REACTIONS (1)
  - Vomiting [None]

NARRATIVE: CASE EVENT DATE: 20191112
